FAERS Safety Report 9474116 (Version 2)
Quarter: 2013Q3

REPORT INFORMATION
  Report Type: Spontaneous
  Country: US (occurrence: US)
  Receive Date: 20130823
  Receipt Date: 20130912
  Transmission Date: 20140515
  Serious: Yes (Other)
  Sender: FDA-Public Use
  Company Number: US-JNJFOC-20130808828

PATIENT
  Age: 54 Year
  Sex: Female

DRUGS (11)
  1. REMICADE [Suspect]
     Indication: RHEUMATOID ARTHRITIS
     Dosage: DOSE 30.0 MG/KG. APPROXIMATE TOTAL NUMBER OF INFUSIONS THE PATIENT RECEIVED 96-8 WEEKS
     Route: 042
     Dates: start: 200001, end: 200604
  2. SIMPONI [Suspect]
     Indication: RHEUMATOID ARTHRITIS
     Route: 058
     Dates: start: 201304
  3. SIMPONI [Suspect]
     Indication: RHEUMATOID ARTHRITIS
     Route: 058
     Dates: start: 201303
  4. HUMIRA [Suspect]
     Indication: RHEUMATOID ARTHRITIS
     Route: 058
     Dates: start: 200604, end: 201304
  5. AMBIEN [Concomitant]
     Indication: SLEEP APNOEA SYNDROME
     Dosage: 12.5 (UNITS UNSPECIFIED)
     Route: 048
  6. ALEVE [Concomitant]
     Indication: PAIN
     Route: 048
  7. TRAMADOL [Concomitant]
     Dosage: 50 (UNITS UNSPECIFIED)
     Route: 048
  8. PREDNISONE [Concomitant]
     Indication: ANTIINFLAMMATORY THERAPY
     Route: 048
  9. SALAGEN [Concomitant]
     Dosage: 5 (UNITS UNSPECIFIED)
     Route: 065
  10. SINGULAIR [Concomitant]
     Dosage: 10 (UNITS UNSPECIFIED)
     Route: 065
  11. METHOTREXATE [Concomitant]
     Route: 065
     Dates: start: 1995, end: 2010

REACTIONS (1)
  - Metaplastic breast carcinoma [Not Recovered/Not Resolved]
